FAERS Safety Report 9934565 (Version 2)
Quarter: 2014Q1

REPORT INFORMATION
  Report Type: Report from Study
  Country: DE (occurrence: DE)
  Receive Date: 20140228
  Receipt Date: 20140228
  Transmission Date: 20141002
  Serious: Yes (Hospitalization)
  Sender: FDA-Public Use
  Company Number: DE-SA-2014SA000640

PATIENT
  Age: 40 Year
  Sex: Female

DRUGS (8)
  1. AUBAGIO [Suspect]
     Indication: MULTIPLE SCLEROSIS
     Route: 048
     Dates: start: 20131225
  2. COPAXONE [Concomitant]
  3. CORTISONE [Concomitant]
     Dates: start: 201312
  4. SEROQUEL [Concomitant]
     Dosage: 0-0-0-300
  5. ATOSIL [Concomitant]
     Dosage: 100-0-150-0
  6. ATOSIL [Concomitant]
     Dosage: 100-0-150-0
  7. RISPERIDONE [Concomitant]
     Dosage: 1-0-2-0
  8. METHYLPREDNISOLONE [Concomitant]
     Indication: MULTIPLE SCLEROSIS
     Dates: start: 20131214, end: 20131216

REACTIONS (2)
  - Depression [Not Recovered/Not Resolved]
  - Drug ineffective [Not Recovered/Not Resolved]
